FAERS Safety Report 11128815 (Version 3)
Quarter: 2015Q4

REPORT INFORMATION
  Report Type: Spontaneous
  Country: CA (occurrence: CA)
  Receive Date: 20150521
  Receipt Date: 20151116
  Transmission Date: 20160304
  Serious: Yes (Other)
  Sender: FDA-Public Use
  Company Number: CA-GLAXOSMITHKLINE-CA2015GSK069251

PATIENT
  Age: 24 Year
  Sex: Female

DRUGS (9)
  1. CAFFEINE. [Concomitant]
     Active Substance: CAFFEINE
  2. CANNABIS [Concomitant]
     Active Substance: CANNABIS SATIVA SUBSP. INDICA TOP
  3. NICOTINE. [Concomitant]
     Active Substance: NICOTINE
  4. LITHIUM. [Concomitant]
     Active Substance: LITHIUM
  5. CYMBALTA [Concomitant]
     Active Substance: DULOXETINE HYDROCHLORIDE
  6. CLONAZEPAM. [Concomitant]
     Active Substance: CLONAZEPAM
  7. BUPROPION. [Suspect]
     Active Substance: BUPROPION
     Indication: SUBSTANCE ABUSE
  8. BUPROPION. [Suspect]
     Active Substance: BUPROPION
     Indication: AFFECTIVE DISORDER
  9. OLANZAPINE. [Concomitant]
     Active Substance: OLANZAPINE

REACTIONS (7)
  - Soft tissue injury [Unknown]
  - Necrosis [Unknown]
  - Cellulitis [Unknown]
  - Vascular injury [Unknown]
  - Compartment syndrome [Unknown]
  - Drug abuse [Unknown]
  - Peripheral ischaemia [Recovering/Resolving]
